FAERS Safety Report 12142077 (Version 1)
Quarter: 2016Q1

REPORT INFORMATION
  Report Type: Spontaneous
  Country: NL (occurrence: NL)
  Receive Date: 20160303
  Receipt Date: 20160303
  Transmission Date: 20160526
  Serious: Yes (Other)
  Sender: FDA-Public Use
  Company Number: NL-SEPTODONT-201603244

PATIENT
  Age: 56 Year
  Sex: Female

DRUGS (1)
  1. SCANDONEST PLAIN [Suspect]
     Active Substance: MEPIVACAINE HYDROCHLORIDE
     Indication: LOCAL ANAESTHESIA
     Dosage: 11 CARTRIDGES OF 1.8 ML: 5.5 IN THE UPPER JAW AND 5 IN THE LOWER JAW.
     Route: 004
     Dates: start: 20160215

REACTIONS (3)
  - Hyperventilation [Recovering/Resolving]
  - Seizure [Recovering/Resolving]
  - Overdose [Recovering/Resolving]

NARRATIVE: CASE EVENT DATE: 20160215
